FAERS Safety Report 23040498 (Version 2)
Quarter: 2023Q4

REPORT INFORMATION
  Report Type: Spontaneous
  Country: US (occurrence: US)
  Receive Date: 20231006
  Receipt Date: 20231117
  Transmission Date: 20240110
  Serious: No
  Sender: FDA-Public Use
  Company Number: US-THERATECHNOLOGIES INC.-2023-THE-TES-000383

PATIENT

DRUGS (2)
  1. EGRIFTA SV [Suspect]
     Active Substance: TESAMORELIN ACETATE
     Indication: Lipodystrophy acquired
     Dosage: 1.4 MG (0.35 ML), QD
     Route: 058
     Dates: start: 202207
  2. EGRIFTA SV [Suspect]
     Active Substance: TESAMORELIN ACETATE
     Dosage: 1.4 MG (0.35 ML), QD
     Route: 058
     Dates: start: 202304, end: 202311

REACTIONS (4)
  - Drug ineffective [Not Recovered/Not Resolved]
  - Weight decreased [Recovering/Resolving]
  - Injection site erythema [Not Recovered/Not Resolved]
  - Injection site pain [Not Recovered/Not Resolved]

NARRATIVE: CASE EVENT DATE: 20231101
